FAERS Safety Report 8275154-X (Version None)
Quarter: 2012Q2

REPORT INFORMATION
  Report Type: 
  Country: None (occurrence: None)
  Receive Date: 20120411
  Receipt Date: 20120404
  Transmission Date: 20120825
  Serious: Yes (Hospitalization)
  Sender: FDA-Public Use
  Company Number: PHHY2012GB014892

PATIENT
  Age: 68 Year
  Sex: Female

DRUGS (4)
  1. ETHAMBUTOL HYDROCHLORIDE [Interacting]
     Indication: TUBERCULOSIS
     Dosage: UNK
     Route: 048
     Dates: start: 20120127
  2. RIFAMPICIN [Suspect]
     Dates: start: 20120127
  3. ZYTIGA [Interacting]
     Indication: BREAST CANCER METASTATIC
     Dosage: 100 MG, QD
     Route: 048
     Dates: start: 20111130
  4. RIFAMPICIN [Interacting]
     Dates: start: 20120207

REACTIONS (5)
  - CONFUSIONAL STATE [None]
  - COORDINATION ABNORMAL [None]
  - MUSCULAR WEAKNESS [None]
  - DYSPNOEA [None]
  - DRUG INTERACTION [None]
